FAERS Safety Report 22141871 (Version 1)
Quarter: 2023Q1

REPORT INFORMATION
  Report Type: Spontaneous
  Country: US (occurrence: None)
  Receive Date: 20230324
  Receipt Date: 20230324
  Transmission Date: 20230418
  Serious: No
  Sender: FDA-Public Use
  Company Number: None

PATIENT
  Age: 60 Year
  Sex: Female

DRUGS (1)
  1. TREMFYA [Suspect]
     Active Substance: GUSELKUMAB
     Indication: Psoriasis
     Dosage: OTHER QUANTITY : 100MG (1 PEN);?FREQUENCY : AS DIRECTED;?
     Route: 058
     Dates: start: 202206

REACTIONS (1)
  - Aortic aneurysm [None]
